FAERS Safety Report 5608465-4 (Version None)
Quarter: 2008Q1

REPORT INFORMATION
  Report Type: 
  Country: None (occurrence: None)
  Receive Date: 20080125
  Receipt Date: 20080116
  Transmission Date: 20080703
  Serious: Yes (Other)
  Sender: FDA-Public Use
  Company Number: 2007337717

PATIENT
  Age: 19 Year
  Sex: Male

DRUGS (1)
  1. SUDAFED 12 HOUR [Suspect]
     Indication: NASAL CONGESTION
     Dosage: 1 TABLET EVERY 4 HOURS (1 IN 4 HR), ORAL
     Route: 048
     Dates: start: 20071211, end: 20071217

REACTIONS (1)
  - DRUG SCREEN POSITIVE [None]
